FAERS Safety Report 24627636 (Version 3)
Quarter: 2025Q2

REPORT INFORMATION
  Report Type: Spontaneous
  Country: JP (occurrence: JP)
  Receive Date: 20241116
  Receipt Date: 20250519
  Transmission Date: 20250716
  Serious: No
  Sender: ARDELYX
  Company Number: JP-ARDELYX-2024ARDX008253

PATIENT

DRUGS (1)
  1. TENAPANOR HYDROCHLORIDE [Suspect]
     Active Substance: TENAPANOR HYDROCHLORIDE
     Indication: Product used for unknown indication
     Route: 048

REACTIONS (1)
  - Product dose omission in error [Unknown]
